FAERS Safety Report 7248014-0 (Version None)
Quarter: 2011Q1

REPORT INFORMATION
  Report Type: 
  Country: None (occurrence: None)
  Receive Date: 20110127
  Receipt Date: 20110124
  Transmission Date: 20110831
  Serious: Yes (Hospitalization)
  Sender: FDA-Public Use
  Company Number: US-ABBOTT-11P-163-0700214-00

PATIENT
  Sex: Male
  Weight: 93.07 kg

DRUGS (1)
  1. HUMIRA [Suspect]
     Indication: CROHN'S DISEASE
     Route: 058

REACTIONS (4)
  - ABDOMINAL PAIN [None]
  - ABSCESS INTESTINAL [None]
  - WHITE BLOOD CELL COUNT INCREASED [None]
  - INSOMNIA [None]
